FAERS Safety Report 24445198 (Version 2)
Quarter: 2024Q4

REPORT INFORMATION
  Report Type: Spontaneous
  Country: US (occurrence: US)
  Receive Date: 20241016
  Receipt Date: 20241104
  Transmission Date: 20250114
  Serious: Yes (Hospitalization)
  Sender: TEVA
  Company Number: US-TEVA-VS-3253348

PATIENT
  Age: 67 Year
  Sex: Female

DRUGS (2)
  1. HYDROMORPHONE [Suspect]
     Active Substance: HYDROMORPHONE
     Indication: Back pain
     Dosage: EXTENDED RELEASE
     Route: 065
  2. CLONAZEPAM [Concomitant]
     Active Substance: CLONAZEPAM
     Indication: Back pain
     Route: 065

REACTIONS (3)
  - Stress cardiomyopathy [Recovering/Resolving]
  - Drug withdrawal syndrome [Recovering/Resolving]
  - Acute respiratory failure [Recovering/Resolving]
